FAERS Safety Report 12524866 (Version 2)
Quarter: 2016Q3

REPORT INFORMATION
  Report Type: Report from Study
  Country: BR (occurrence: BR)
  Receive Date: 20160704
  Receipt Date: 20160713
  Transmission Date: 20161109
  Serious: Yes (Hospitalization, Other)
  Sender: FDA-Public Use
  Company Number: BR-UCBSA-2016024808

PATIENT
  Age: 71 Year
  Sex: Female
  Weight: 58 kg

DRUGS (8)
  1. CODEX [Concomitant]
     Active Substance: ACETAMINOPHEN\CODEINE PHOSPHATE
     Indication: PAIN
     Dosage: UNK, 10 TABLETS
     Route: 048
  2. XALATAN [Concomitant]
     Active Substance: LATANOPROST
     Indication: GLAUCOMA
     Dosage: 1 DROP IN EVERY EYE DAILY
     Route: 047
     Dates: start: 2015
  3. PREDSIM [Concomitant]
     Active Substance: PREDNISOLONE
     Indication: RHEUMATOID ARTHRITIS
     Dosage: 1 TABLET PER DAY
     Dates: start: 2015
  4. CERTOLIZUMAB PEGOL [Suspect]
     Active Substance: CERTOLIZUMAB PEGOL
     Indication: RHEUMATOID ARTHRITIS
     Dosage: 400 MG, EV 4 WEEKS
     Dates: start: 2015
  5. TRAMAL [Concomitant]
     Active Substance: TRAMADOL
     Indication: PAIN
     Route: 048
  6. HYDROCHLOROTHIAZIDE. [Concomitant]
     Active Substance: HYDROCHLOROTHIAZIDE
     Indication: HYPERTENSION
     Dosage: 25 MG, ONCE DAILY (QD)
     Route: 048
     Dates: start: 2006
  7. ENALAPRIL [Concomitant]
     Active Substance: ENALAPRIL
     Indication: HYPERTENSION
     Dosage: 20 MG, ONCE DAILY (QD)
     Route: 048
     Dates: start: 2001
  8. ARAVA [Concomitant]
     Active Substance: LEFLUNOMIDE
     Indication: RHEUMATOID ARTHRITIS
     Route: 048

REACTIONS (16)
  - Fall [Recovered/Resolved]
  - Glaucoma [Not Recovered/Not Resolved]
  - Tremor [Not Recovered/Not Resolved]
  - Weight decreased [Recovering/Resolving]
  - Chest injury [Not Recovered/Not Resolved]
  - Wrist fracture [Recovering/Resolving]
  - Speech disorder [Unknown]
  - Asthenia [Not Recovered/Not Resolved]
  - Nausea [Not Recovered/Not Resolved]
  - Hip fracture [Recovering/Resolving]
  - Pain in extremity [Unknown]
  - Peripheral swelling [Not Recovered/Not Resolved]
  - Decreased appetite [Unknown]
  - Upper limb fracture [Recovered/Resolved]
  - Fatigue [Not Recovered/Not Resolved]
  - Drug dose omission [Unknown]

NARRATIVE: CASE EVENT DATE: 2015
